FAERS Safety Report 11471636 (Version 2)
Quarter: 2015Q3

REPORT INFORMATION
  Report Type: Spontaneous
  Country: US (occurrence: None)
  Receive Date: 20150908
  Receipt Date: 20150915
  Transmission Date: 20151125
  Serious: Yes (Other)
  Sender: FDA-Public Use
  Company Number: US-MDT-ADR-2015-01727

PATIENT
  Age: 65 Year
  Sex: Male

DRUGS (1)
  1. BACLOFEN INTRATHECAL 2000 MCG/ML [Suspect]
     Active Substance: BACLOFEN
     Dosage: 574.8 MCG/DAY

REACTIONS (9)
  - Amnesia [None]
  - Hyperhidrosis [None]
  - Weight decreased [None]
  - Erythema [None]
  - Tachycardia [None]
  - Muscle spasms [None]
  - Pruritus [None]
  - Blood pressure increased [None]
  - Drug withdrawal syndrome [None]
